FAERS Safety Report 19847054 (Version 2)
Quarter: 2022Q1

REPORT INFORMATION
  Report Type: Spontaneous
  Country: US (occurrence: US)
  Receive Date: 20210917
  Receipt Date: 20220111
  Transmission Date: 20220423
  Serious: Yes (Other)
  Sender: FDA-Public Use
  Company Number: US-CIPLA LTD.-2021US06208

PATIENT

DRUGS (1)
  1. BLEOMYCIN SULFATE [Suspect]
     Active Substance: BLEOMYCIN SULFATE
     Indication: Lymphatic disorder
     Dosage: UNK
     Route: 065

REACTIONS (3)
  - Ear haemorrhage [Unknown]
  - Ear pain [Unknown]
  - Lymphatic disorder [Unknown]
